FAERS Safety Report 7246351-7 (Version None)
Quarter: 2011Q1

REPORT INFORMATION
  Report Type: 
  Country: None (occurrence: None)
  Receive Date: 20110126
  Receipt Date: 20110120
  Transmission Date: 20110831
  Serious: Yes (Other)
  Sender: FDA-Public Use
  Company Number: US-PFIZER INC-2011014500

PATIENT
  Sex: Female
  Weight: 63.9 kg

DRUGS (9)
  1. SPIRONOLACTONE [Concomitant]
     Indication: CARDIAC DISORDER
     Dosage: 25 MG, UNK
  2. ZOCOR [Concomitant]
     Indication: CARDIAC DISORDER
     Dosage: 40 MG, UNK
  3. PREMPRO [Suspect]
     Dosage: 0.3/1.5 MG
     Route: 048
     Dates: start: 20100101
  4. PLAVIX [Concomitant]
     Indication: CARDIAC DISORDER
     Dosage: 75 MG, UNK
  5. METOPROLOL [Concomitant]
     Indication: CARDIAC DISORDER
     Dosage: 25 MG, UNK
  6. KLOR-CON [Concomitant]
     Indication: CARDIAC DISORDER
     Dosage: 10 MEQ, UNK
  7. DIGOXIN [Concomitant]
     Indication: CARDIAC DISORDER
     Dosage: 0.125 MG, UNK
  8. COZAAR [Concomitant]
     Indication: CARDIAC DISORDER
     Dosage: 50 MG, UNK
  9. LASIX [Concomitant]
     Indication: CARDIAC DISORDER
     Dosage: 20 MG, UNK

REACTIONS (2)
  - VENOUS OCCLUSION [None]
  - MYOCARDIAL INFARCTION [None]
